FAERS Safety Report 6702172-2 (Version None)
Quarter: 2010Q2

REPORT INFORMATION
  Report Type: 
  Country: None (occurrence: None)
  Receive Date: 20100429
  Receipt Date: 20100423
  Transmission Date: 20101027
  Serious: Yes (Hospitalization)
  Sender: FDA-Public Use
  Company Number: NL-MPIJNJ-2010-02355

PATIENT

DRUGS (10)
  1. VELCADE [Suspect]
     Indication: MULTIPLE MYELOMA
     Dosage: 1 DF, UNK
     Dates: start: 20090928, end: 20100104
  2. PREDNISONE TAB [Concomitant]
     Dosage: 10 MG, UNK
  3. LANTUS [Concomitant]
     Dosage: 1 DF, UNK
  4. ORADEXON                           /00016001/ [Concomitant]
     Dosage: 1 DF, UNK
  5. ACETYLSALICYLZUUR CARDIO [Concomitant]
     Dosage: 80 MG, UNK
  6. HYDROXOCOBALAMIN HYDROCHLORIDE [Concomitant]
     Dosage: 1 DF, UNK
  7. METFORMIN HYDROCHLORIDE [Concomitant]
     Dosage: 1 G, UNK
  8. LOPERAMIDE HYDROCHLORIDE [Concomitant]
     Dosage: 2 MG, UNK
  9. METOPROLOL TARTRATE [Concomitant]
     Dosage: 100 MG, UNK
  10. NEXIUM [Concomitant]
     Dosage: 20 MG, UNK

REACTIONS (1)
  - TREMOR [None]
